FAERS Safety Report 6089772-0 (Version None)
Quarter: 2009Q1

REPORT INFORMATION
  Report Type: 
  Country: None (occurrence: None)
  Receive Date: 20090220
  Receipt Date: 20090206
  Transmission Date: 20090719
  Serious: Yes (Hospitalization)
  Sender: FDA-Public Use
  Company Number: 235821J08USA

PATIENT
  Age: 48 Year
  Sex: Female
  Weight: 79 kg

DRUGS (5)
  1. REBIF [Suspect]
     Indication: MULTIPLE SCLEROSIS
     Dosage: 44 MCG, 3 IN 1 WEEKS, SUBCUTANEOUS
     Route: 058
     Dates: start: 20061218
  2. PROMETRIUM [Concomitant]
  3. IMITREX(SUMATRIPTAN) [Concomitant]
  4. BACLOFEN` [Concomitant]
  5. THYROID TAB [Concomitant]

REACTIONS (2)
  - AMENORRHOEA [None]
  - ENDOMETRIAL SARCOMA [None]
